FAERS Safety Report 12722690 (Version 1)
Quarter: 2016Q3

REPORT INFORMATION
  Report Type: Report from Study
  Country: US (occurrence: US)
  Receive Date: 20160907
  Receipt Date: 20160907
  Transmission Date: 20161109
  Serious: Yes (Death)
  Sender: FDA-Public Use
  Company Number: US-ROCHE-1827251

PATIENT
  Age: 12 Year
  Sex: Male

DRUGS (1)
  1. BEVACIZUMAB [Suspect]
     Active Substance: BEVACIZUMAB
     Indication: MEDULLOBLASTOMA
     Dosage: LAST TREATMENT STUDY TREATMENT PRIOR TO THE PATIENT^S DEATH WAS ADMINISTERED ON 20/APR/2011.
     Route: 065

REACTIONS (1)
  - Death [Fatal]

NARRATIVE: CASE EVENT DATE: 20110605
